FAERS Safety Report 5740645-X (Version None)
Quarter: 2008Q2

REPORT INFORMATION
  Report Type: 
  Country: None (occurrence: None)
  Receive Date: 20080516
  Receipt Date: 20080509
  Transmission Date: 20081010
  Serious: Yes (Other)
  Sender: FDA-Public Use
  Company Number: B0520281A

PATIENT
  Age: 65 Year
  Sex: Female

DRUGS (1)
  1. ARIXTRA [Suspect]
     Dosage: 2.5MG PER DAY
     Route: 058

REACTIONS (1)
  - THROMBOCYTHAEMIA [None]
